FAERS Safety Report 25685159 (Version 2)
Quarter: 2025Q3

REPORT INFORMATION
  Report Type: Spontaneous
  Country: JP (occurrence: JP)
  Receive Date: 20250815
  Receipt Date: 20250924
  Transmission Date: 20251021
  Serious: Yes (Death)
  Sender: VERICEL
  Company Number: JP-VERICEL-JP-VCEL-25-000247

PATIENT
  Age: 78 Year
  Sex: Female
  Weight: 48.5 kg

DRUGS (2)
  1. BROMELAINS [Suspect]
     Active Substance: BROMELAINS
     Indication: Burns second degree
     Route: 061
     Dates: start: 20250530, end: 20250530
  2. BROMELAINS [Suspect]
     Active Substance: BROMELAINS
     Indication: Burns third degree

REACTIONS (1)
  - Multiple organ dysfunction syndrome [Fatal]

NARRATIVE: CASE EVENT DATE: 20250602
